FAERS Safety Report 10226581 (Version 2)
Quarter: 2014Q2

REPORT INFORMATION
  Report Type: Spontaneous
  Country: US (occurrence: US)
  Receive Date: 20140609
  Receipt Date: 20140609
  Transmission Date: 20141212
  Serious: No
  Sender: FDA-Public Use
  Company Number: US-AMGEN INC.-USASP2014006588

PATIENT
  Age: 54 Year
  Sex: Female
  Weight: 107.5 kg

DRUGS (1)
  1. EPOGEN [Suspect]
     Indication: RENAL FAILURE CHRONIC
     Dosage: 2000 UNIT, Q3WK
     Route: 042
     Dates: start: 20140125, end: 20140215

REACTIONS (1)
  - Medication error [Unknown]
